FAERS Safety Report 18172273 (Version 10)
Quarter: 2023Q4

REPORT INFORMATION
  Report Type: Spontaneous
  Country: CA (occurrence: CA)
  Receive Date: 20200819
  Receipt Date: 20231023
  Transmission Date: 20240110
  Serious: Yes (Life-Threatening, Hospitalization, Other)
  Sender: FDA-Public Use
  Company Number: CA-009507513-1907CAN002395

PATIENT
  Age: 61 Year
  Sex: Female
  Weight: 70 kg

DRUGS (129)
  1. JANUVIA [Suspect]
     Active Substance: SITAGLIPTIN PHOSPHATE
     Indication: Product used for unknown indication
     Dosage: UNK
     Route: 065
  2. JANUVIA [Suspect]
     Active Substance: SITAGLIPTIN PHOSPHATE
     Dosage: DOSAGE FORM: NOT SPECIFIED
     Route: 065
  3. ACETAMINOPHEN [Suspect]
     Active Substance: ACETAMINOPHEN
     Indication: Product used for unknown indication
     Dosage: DOSE: 650.0 MILLIGRAM; FREQUENCY: 1 EVERY 1 DAYS
     Route: 048
  4. ALISKIREN HEMIFUMARATE [Suspect]
     Active Substance: ALISKIREN HEMIFUMARATE
     Indication: Product used for unknown indication
     Dosage: 150 MILLIGRAM
     Route: 065
  5. ALISKIREN HEMIFUMARATE [Suspect]
     Active Substance: ALISKIREN HEMIFUMARATE
     Indication: Off label use
     Dosage: DOSE: 300.0 MILLIGRAM
     Route: 065
  6. ALISKIREN HEMIFUMARATE [Suspect]
     Active Substance: ALISKIREN HEMIFUMARATE
     Indication: Microalbuminuria
     Dosage: DOSE: 150.0 MILLIGRAM
     Route: 065
  7. ALISKIREN HEMIFUMARATE [Suspect]
     Active Substance: ALISKIREN HEMIFUMARATE
     Indication: Hypertension
     Dosage: DOSE: 300.0 MILLIGRAM
     Route: 065
  8. ALISKIREN HEMIFUMARATE [Suspect]
     Active Substance: ALISKIREN HEMIFUMARATE
     Dosage: DOSE: 300.0 MILLIGRAM
     Route: 065
  9. ALISKIREN HEMIFUMARATE [Suspect]
     Active Substance: ALISKIREN HEMIFUMARATE
     Dosage: DOSE: 150.0 MILLIGRAM
     Route: 065
  10. ALISKIREN HEMIFUMARATE [Suspect]
     Active Substance: ALISKIREN HEMIFUMARATE
     Dosage: DOSE: 150.0 MILLIGRAM
     Route: 065
  11. ALISKIREN HEMIFUMARATE [Suspect]
     Active Substance: ALISKIREN HEMIFUMARATE
     Dosage: DOSE: 300.0 MILLIGRAM
     Route: 065
  12. ALISKIREN [Suspect]
     Active Substance: ALISKIREN
     Indication: Product used for unknown indication
     Dosage: DOSE:150.0 MILLIGRAM
     Route: 048
  13. ALTACE [Suspect]
     Active Substance: RAMIPRIL
     Indication: Product used for unknown indication
     Dosage: UNK
     Route: 048
  14. ALTACE [Suspect]
     Active Substance: RAMIPRIL
     Dosage: UNK
     Route: 048
  15. ALTACE [Suspect]
     Active Substance: RAMIPRIL
     Dosage: UNK
     Route: 048
  16. ALTACE [Suspect]
     Active Substance: RAMIPRIL
     Dosage: UNK
     Route: 048
  17. AMLODIPINE BESYLATE [Suspect]
     Active Substance: AMLODIPINE BESYLATE
     Indication: Product used for unknown indication
     Dosage: UNK
     Route: 048
  18. AMLODIPINE BESYLATE [Suspect]
     Active Substance: AMLODIPINE BESYLATE
     Dosage: 1 DOSAGE FORM
     Route: 048
  19. AMLODIPINE BESYLATE [Suspect]
     Active Substance: AMLODIPINE BESYLATE
     Dosage: 5.0 MILLIGRAM
     Route: 048
  20. ATACAND [Suspect]
     Active Substance: CANDESARTAN CILEXETIL
     Indication: Hypertension
     Dosage: UNK
     Route: 048
  21. BISOPROLOL [Suspect]
     Active Substance: BISOPROLOL\BISOPROLOL FUMARATE
     Indication: Product used for unknown indication
     Dosage: UNK
     Route: 065
  22. CALCIUM CARBONATE [Suspect]
     Active Substance: CALCIUM CARBONATE
     Indication: Product used for unknown indication
     Dosage: DOSAGE FORM: NOT SPECIFIED
     Route: 065
  23. COSENTYX [Suspect]
     Active Substance: SECUKINUMAB
     Indication: Psoriatic arthropathy
     Dosage: DOSE: 300.0 MILLIGRAM
     Route: 058
  24. COSENTYX [Suspect]
     Active Substance: SECUKINUMAB
     Indication: Psoriasis
     Dosage: DOSE: 300.0 MILLIGRAM
     Route: 058
  25. COSENTYX [Suspect]
     Active Substance: SECUKINUMAB
     Indication: Hypertension
     Dosage: DOSE: 30.0 MILLIGRAM
     Route: 065
  26. COSENTYX [Suspect]
     Active Substance: SECUKINUMAB
     Indication: Product used for unknown indication
     Dosage: DOSE: 300.0 MILLIGRAM
     Route: 058
  27. COSENTYX [Suspect]
     Active Substance: SECUKINUMAB
     Dosage: DOSE: 30.0 MILLIGRAM
     Route: 065
  28. COSENTYX [Suspect]
     Active Substance: SECUKINUMAB
     Dosage: DOSE: 30.0 MILLIGRAM
     Route: 065
  29. GLICLAZIDE [Suspect]
     Active Substance: GLICLAZIDE
     Indication: Diabetes mellitus
     Dosage: UNK
     Route: 048
  30. GLICLAZIDE [Suspect]
     Active Substance: GLICLAZIDE
     Indication: Blood pressure measurement
     Dosage: UNK
     Route: 065
  31. GLICLAZIDE [Suspect]
     Active Substance: GLICLAZIDE
     Indication: Product used for unknown indication
     Dosage: UNK
     Route: 065
  32. GLICLAZIDE [Suspect]
     Active Substance: GLICLAZIDE
     Dosage: UNK
     Route: 065
  33. GLICLAZIDE [Suspect]
     Active Substance: GLICLAZIDE
     Dosage: UNK
     Route: 065
  34. GLICLAZIDE [Suspect]
     Active Substance: GLICLAZIDE
     Dosage: UNK
     Route: 065
  35. GLICLAZIDE [Suspect]
     Active Substance: GLICLAZIDE
     Dosage: UNK
     Route: 048
  36. GLICLAZIDE [Suspect]
     Active Substance: GLICLAZIDE
     Dosage: UNK
     Route: 065
  37. GLICLAZIDE [Suspect]
     Active Substance: GLICLAZIDE
     Dosage: UNK
     Route: 065
  38. GLICLAZIDE [Suspect]
     Active Substance: GLICLAZIDE
     Dosage: UNK
     Route: 048
  39. GLICLAZIDE [Suspect]
     Active Substance: GLICLAZIDE
     Dosage: UNK
     Route: 065
  40. GLICLAZIDE [Suspect]
     Active Substance: GLICLAZIDE
     Dosage: UNK
     Route: 065
  41. GLICLAZIDE [Suspect]
     Active Substance: GLICLAZIDE
     Dosage: UNK
     Route: 048
  42. GLICLAZIDE [Suspect]
     Active Substance: GLICLAZIDE
     Dosage: UNK
     Route: 065
  43. GLICLAZIDE [Suspect]
     Active Substance: GLICLAZIDE
     Dosage: UNK
     Route: 065
  44. GLICLAZIDE [Suspect]
     Active Substance: GLICLAZIDE
     Dosage: UNK
     Route: 065
  45. DIPHENHYDRAMINE HYDROCHLORIDE [Suspect]
     Active Substance: DIPHENHYDRAMINE HYDROCHLORIDE
     Indication: Premedication
     Dosage: DOSE: 50.0 MILLIGRAM; FREQUENCY: 1 EVERY 1 DAYS, FORMULATION: CAPSULE
     Route: 048
  46. DIPHENHYDRAMINE HYDROCHLORIDE [Suspect]
     Active Substance: DIPHENHYDRAMINE HYDROCHLORIDE
     Indication: Product used for unknown indication
     Dosage: DOSE: 50.0 MILLIGRAM; FREQUENCY: 1 EVERY 1 DAYS, FORMULATION: UNKNOWN
     Route: 048
  47. DIPHENHYDRAMINE HYDROCHLORIDE [Suspect]
     Active Substance: DIPHENHYDRAMINE HYDROCHLORIDE
     Dosage: DOSE: 50.0 MILLIGRAM; FREQUENCY: 1 EVERY 1 DAYS, FORMULATION: CAPSULE
     Route: 048
  48. ERGOCALCIFEROL [Suspect]
     Active Substance: ERGOCALCIFEROL
     Indication: Product used for unknown indication
     Dosage: DOSAGE FORM: NOT SPECIFIED
     Route: 065
  49. ESOMEPRAZOLE MAGNESIUM [Suspect]
     Active Substance: ESOMEPRAZOLE\ESOMEPRAZOLE MAGNESIUM\ESOMEPRAZOLE MAGNESIUM DIHYDRATE
     Indication: Product used for unknown indication
     Dosage: UNK
     Route: 048
  50. ESOMEPRAZOLE MAGNESIUM [Suspect]
     Active Substance: ESOMEPRAZOLE\ESOMEPRAZOLE MAGNESIUM\ESOMEPRAZOLE MAGNESIUM DIHYDRATE
     Dosage: UNK
     Route: 048
  51. ESOMEPRAZOLE MAGNESIUM [Suspect]
     Active Substance: ESOMEPRAZOLE\ESOMEPRAZOLE MAGNESIUM\ESOMEPRAZOLE MAGNESIUM DIHYDRATE
     Dosage: UNK
     Route: 065
  52. ESOMEPRAZOLE MAGNESIUM [Suspect]
     Active Substance: ESOMEPRAZOLE\ESOMEPRAZOLE MAGNESIUM\ESOMEPRAZOLE MAGNESIUM DIHYDRATE
     Dosage: UNK
     Route: 042
  53. ESOMEPRAZOLE MAGNESIUM [Suspect]
     Active Substance: ESOMEPRAZOLE\ESOMEPRAZOLE MAGNESIUM\ESOMEPRAZOLE MAGNESIUM DIHYDRATE
     Dosage: UNK
     Route: 048
  54. ESOMEPRAZOLE MAGNESIUM [Suspect]
     Active Substance: ESOMEPRAZOLE\ESOMEPRAZOLE MAGNESIUM\ESOMEPRAZOLE MAGNESIUM DIHYDRATE
     Dosage: UNK
     Route: 048
  55. ESOMEPRAZOLE MAGNESIUM [Suspect]
     Active Substance: ESOMEPRAZOLE\ESOMEPRAZOLE MAGNESIUM\ESOMEPRAZOLE MAGNESIUM DIHYDRATE
     Dosage: UNK
     Route: 048
  56. ESOMEPRAZOLE MAGNESIUM [Suspect]
     Active Substance: ESOMEPRAZOLE\ESOMEPRAZOLE MAGNESIUM\ESOMEPRAZOLE MAGNESIUM DIHYDRATE
     Dosage: UNK
     Route: 048
  57. ESOMEPRAZOLE SODIUM [Suspect]
     Active Substance: ESOMEPRAZOLE SODIUM
     Indication: Product used for unknown indication
     Dosage: UNK
     Route: 042
  58. ESOMEPRAZOLE SODIUM [Suspect]
     Active Substance: ESOMEPRAZOLE SODIUM
     Dosage: UNK
     Route: 065
  59. ESOMEPRAZOLE SODIUM [Suspect]
     Active Substance: ESOMEPRAZOLE SODIUM
     Dosage: UNK
     Route: 042
  60. ESOMEPRAZOLE SODIUM [Suspect]
     Active Substance: ESOMEPRAZOLE SODIUM
     Dosage: UNK
     Route: 042
  61. ESOMEPRAZOLE SODIUM [Suspect]
     Active Substance: ESOMEPRAZOLE SODIUM
     Dosage: UNK
     Route: 065
  62. ESOMEPRAZOLE SODIUM [Suspect]
     Active Substance: ESOMEPRAZOLE SODIUM
     Dosage: UNK
     Route: 042
  63. GRAVOL [Suspect]
     Active Substance: DIMENHYDRINATE
     Indication: Premedication
     Dosage: DOSAGE FORM: NOT SPECIFIED; DOSE: 50.0 MILLIGRAM
     Route: 065
  64. GRAVOL [Suspect]
     Active Substance: DIMENHYDRINATE
     Indication: Product used for unknown indication
     Dosage: DOSE: 50 MILLIGRAM
  65. GRAVOL [Suspect]
     Active Substance: DIMENHYDRINATE
     Dosage: DOSE: 100 MILLIGRAM
     Route: 065
  66. IRBESARTAN [Suspect]
     Active Substance: IRBESARTAN
     Indication: Hypertension
     Dosage: DOSE: 1.0 DOSAGE FORMS
     Route: 048
  67. IRBESARTAN [Suspect]
     Active Substance: IRBESARTAN
     Dosage: DOSE: 300.0 MILLIGRAM
     Route: 065
  68. LIPITOR [Suspect]
     Active Substance: ATORVASTATIN CALCIUM
     Indication: Product used for unknown indication
     Dosage: 20 MILLIGRAM, 1 EVERY 1 DAY, DOSA FORM: NOT SPECIFIED
     Route: 065
  69. LISINOPRIL [Suspect]
     Active Substance: LISINOPRIL
     Indication: Hypertension
     Dosage: UNK
     Route: 048
  70. LISINOPRIL [Suspect]
     Active Substance: LISINOPRIL
     Indication: Product used for unknown indication
     Dosage: UNK
     Route: 048
  71. LISINOPRIL [Suspect]
     Active Substance: LISINOPRIL
     Dosage: UNK
     Route: 048
  72. LISINOPRIL [Suspect]
     Active Substance: LISINOPRIL
     Dosage: UNK
     Route: 048
  73. LISINOPRIL [Suspect]
     Active Substance: LISINOPRIL
     Dosage: UNK
     Route: 048
  74. LISINOPRIL [Suspect]
     Active Substance: LISINOPRIL
     Dosage: UNK
     Route: 048
  75. METFORMIN HYDROCHLORIDE [Suspect]
     Active Substance: METFORMIN HYDROCHLORIDE
     Indication: Product used for unknown indication
     Dosage: UNK
     Route: 048
  76. METFORMIN HYDROCHLORIDE [Suspect]
     Active Substance: METFORMIN HYDROCHLORIDE
     Dosage: UNK
     Route: 048
  77. METHOTREXATE [Suspect]
     Active Substance: METHOTREXATE
     Indication: Product used for unknown indication
     Dosage: DOSAGE FORM: NOT SPECIFIED
     Route: 064
  78. METHOTREXATE [Suspect]
     Active Substance: METHOTREXATE
     Dosage: DOSAGE FORM: NOT SPECIFIED
     Route: 064
  79. METHYLPREDNISOLONE SODIUM SUCCINATE [Suspect]
     Active Substance: METHYLPREDNISOLONE SODIUM SUCCINATE
     Indication: Premedication
     Dosage: DOSE: 100.0 MILLIGRAM; FREQUENCY: 1 EVERY 1 DAYS; ROUTE OF ADMINNISTRATION: INTRAVENOUS (NOT OTHERWI
     Route: 042
  80. METHYLPREDNISOLONE SODIUM SUCCINATE [Suspect]
     Active Substance: METHYLPREDNISOLONE SODIUM SUCCINATE
     Dosage: DOSE: 100.0 MILLIGRAM; FREQUENCY: 1 EVERY 1 DAYS; ROUTE OF ADMINNISTRATION: INTRAVENOUS (NOT OTHERWI
  81. MORPHINE SULFATE [Suspect]
     Active Substance: MORPHINE SULFATE
     Indication: Product used for unknown indication
     Dosage: DOSAGE FORM; NOT SPECIFIED
     Route: 030
  82. MORPHINE SULFATE [Suspect]
     Active Substance: MORPHINE SULFATE
     Dosage: UNK
     Route: 065
  83. MORPHINE SULFATE [Suspect]
     Active Substance: MORPHINE SULFATE
     Dosage: DOSAGE FORM; NOT SPECIFIED
     Route: 030
  84. MORPHINE SULFATE [Suspect]
     Active Substance: MORPHINE SULFATE
     Dosage: UNK
     Route: 065
  85. PREDNISONE [Suspect]
     Active Substance: PREDNISONE
     Indication: Product used for unknown indication
     Dosage: DOSAGE FORM: NOT SPECIFIED
     Route: 065
  86. PREDNISONE [Suspect]
     Active Substance: PREDNISONE
     Dosage: DOSAGE FORM: NOT SPECIFIED
     Route: 065
  87. RITUXIMAB [Suspect]
     Active Substance: RITUXIMAB
     Indication: Sjogren^s syndrome
     Dosage: 1000 MILLIGRAM
     Route: 042
  88. RITUXIMAB [Suspect]
     Active Substance: RITUXIMAB
     Indication: Rheumatoid arthritis
     Dosage: 1000 MILLIGRAM
     Route: 042
  89. RITUXIMAB [Suspect]
     Active Substance: RITUXIMAB
     Indication: Product used for unknown indication
     Dosage: UNK
     Route: 042
  90. RITUXIMAB [Suspect]
     Active Substance: RITUXIMAB
     Dosage: 1000 MILLIGRAM
     Route: 042
  91. RITUXIMAB [Suspect]
     Active Substance: RITUXIMAB
     Dosage: 1000 MILLIGRAM
     Route: 042
  92. RITUXIMAB [Suspect]
     Active Substance: RITUXIMAB
     Dosage: UNK
     Route: 042
  93. RITUXIMAB [Suspect]
     Active Substance: RITUXIMAB
     Dosage: 1000 MILLIGRAM
     Route: 042
  94. RITUXIMAB [Suspect]
     Active Substance: RITUXIMAB
     Dosage: UNK
     Route: 042
  95. RITUXIMAB [Suspect]
     Active Substance: RITUXIMAB
     Dosage: 1000 MILLIGRAM
     Route: 042
  96. RITUXIMAB [Suspect]
     Active Substance: RITUXIMAB
     Dosage: 1000 MILLIGRAM
     Route: 042
  97. RITUXIMAB [Suspect]
     Active Substance: RITUXIMAB
     Dosage: 1000 MILLIGRAM
     Route: 042
  98. RITUXIMAB [Suspect]
     Active Substance: RITUXIMAB
     Dosage: 1000 MILLIGRAM
     Route: 042
  99. RITUXIMAB [Suspect]
     Active Substance: RITUXIMAB
     Dosage: UNK
     Route: 042
  100. RITUXIMAB [Suspect]
     Active Substance: RITUXIMAB
     Dosage: 1000 MILLIGRAM
     Route: 042
  101. RITUXIMAB [Suspect]
     Active Substance: RITUXIMAB
     Dosage: UNK
     Route: 042
  102. PROCHLORPERAZINE [Suspect]
     Active Substance: PROCHLORPERAZINE
     Indication: Vomiting
     Dosage: UNK
     Route: 065
  103. PROCHLORPERAZINE [Suspect]
     Active Substance: PROCHLORPERAZINE
     Indication: Product used for unknown indication
     Dosage: DOSAGE FORM: NOT SPECIFIED
     Route: 065
  104. SYNTHROID [Suspect]
     Active Substance: LEVOTHYROXINE SODIUM
     Dosage: DOSAGE FORM: NOT SPECIFIED
     Route: 065
  105. SYNTHROID [Suspect]
     Active Substance: LEVOTHYROXINE SODIUM
     Dosage: UNK
     Route: 065
  106. ZOFRAN [Suspect]
     Active Substance: ONDANSETRON HYDROCHLORIDE
     Indication: Product used for unknown indication
     Dosage: UNK
     Route: 065
  107. ZOFRAN [Suspect]
     Active Substance: ONDANSETRON HYDROCHLORIDE
     Dosage: DOSAGE FORM: NOT SPECIFIED
     Route: 065
  108. ONDANSETRON HYDROCHLORIDE [Suspect]
     Active Substance: ONDANSETRON HYDROCHLORIDE
     Indication: Product used for unknown indication
  109. ACITRETIN [Concomitant]
     Active Substance: ACITRETIN
  110. HYDROCHLOROTHIAZIDE [Concomitant]
     Active Substance: HYDROCHLOROTHIAZIDE
  111. ASPIRIN [Concomitant]
     Active Substance: ASPIRIN
  112. AVAPRO [Concomitant]
     Active Substance: IRBESARTAN
  113. DOMPERIDONE MALEATE [Concomitant]
     Active Substance: DOMPERIDONE MALEATE
  114. LYRICA [Concomitant]
     Active Substance: PREGABALIN
  115. PANTOPRAZOL SODICO [Concomitant]
  116. ROSUVASTATIN CALCIUM [Concomitant]
     Active Substance: ROSUVASTATIN CALCIUM
  117. ZOLPIDEM [Concomitant]
     Active Substance: ZOLPIDEM TARTRATE
  118. COAL TAR [Concomitant]
     Active Substance: COAL TAR
  119. CYMBALTA [Concomitant]
     Active Substance: DULOXETINE HYDROCHLORIDE
  120. DEPO-MEDROL [Concomitant]
     Active Substance: METHYLPREDNISOLONE ACETATE
  121. DOVONEX [Concomitant]
     Active Substance: CALCIPOTRIENE
  122. LEVOTHYROXINE [Concomitant]
     Active Substance: LEVOTHYROXINE
  123. EZETIMIBE [Concomitant]
     Active Substance: EZETIMIBE
  124. HUMALOG [Concomitant]
     Active Substance: INSULIN LISPRO
  125. LANTUS [Concomitant]
     Active Substance: INSULIN GLARGINE
  126. PANTOPRAZOLE [Concomitant]
     Active Substance: PANTOPRAZOLE
  127. STELARA [Concomitant]
     Active Substance: USTEKINUMAB
  128. TELMISARTAN [Concomitant]
     Active Substance: TELMISARTAN
  129. TYLENOL [Concomitant]
     Active Substance: ACETAMINOPHEN

REACTIONS (53)
  - Adjustment disorder [Not Recovered/Not Resolved]
  - Affect lability [Not Recovered/Not Resolved]
  - Angina pectoris [Not Recovered/Not Resolved]
  - Anxiety [Not Recovered/Not Resolved]
  - Aphasia [Not Recovered/Not Resolved]
  - Arterial occlusive disease [Not Recovered/Not Resolved]
  - Arthritis [Not Recovered/Not Resolved]
  - Asthenia [Not Recovered/Not Resolved]
  - Blood pressure increased [Not Recovered/Not Resolved]
  - Carotid artery thrombosis [Not Recovered/Not Resolved]
  - Cataract [Not Recovered/Not Resolved]
  - Cerebrovascular accident [Not Recovered/Not Resolved]
  - Chest discomfort [Not Recovered/Not Resolved]
  - Confusional state [Not Recovered/Not Resolved]
  - Coordination abnormal [Not Recovered/Not Resolved]
  - Cough [Not Recovered/Not Resolved]
  - Cystitis [Not Recovered/Not Resolved]
  - Dysarthria [Not Recovered/Not Resolved]
  - Dysphagia [Not Recovered/Not Resolved]
  - Eating disorder [Not Recovered/Not Resolved]
  - Fall [Not Recovered/Not Resolved]
  - Fatigue [Not Recovered/Not Resolved]
  - Gangrene [Not Recovered/Not Resolved]
  - Gastrointestinal disorder [Not Recovered/Not Resolved]
  - Headache [Not Recovered/Not Resolved]
  - Hemiparesis [Not Recovered/Not Resolved]
  - Hemiplegia [Not Recovered/Not Resolved]
  - Influenza [Not Recovered/Not Resolved]
  - Influenza like illness [Not Recovered/Not Resolved]
  - Malaise [Not Recovered/Not Resolved]
  - Motor dysfunction [Not Recovered/Not Resolved]
  - Muscle spasticity [Not Recovered/Not Resolved]
  - Muscular weakness [Not Recovered/Not Resolved]
  - Nasopharyngitis [Not Recovered/Not Resolved]
  - Nausea [Not Recovered/Not Resolved]
  - Neurologic neglect syndrome [Not Recovered/Not Resolved]
  - Pain [Not Recovered/Not Resolved]
  - Palpitations [Not Recovered/Not Resolved]
  - Personality disorder [Not Recovered/Not Resolved]
  - Pneumonia [Not Recovered/Not Resolved]
  - Psoriasis [Not Recovered/Not Resolved]
  - Pyrexia [Not Recovered/Not Resolved]
  - Respiratory tract congestion [Not Recovered/Not Resolved]
  - Rheumatoid arthritis [Not Recovered/Not Resolved]
  - Rhinorrhoea [Not Recovered/Not Resolved]
  - Sensory loss [Not Recovered/Not Resolved]
  - Sinus congestion [Not Recovered/Not Resolved]
  - Sinus disorder [Not Recovered/Not Resolved]
  - Sinusitis [Not Recovered/Not Resolved]
  - Skin exfoliation [Not Recovered/Not Resolved]
  - Skin haemorrhage [Not Recovered/Not Resolved]
  - Sneezing [Not Recovered/Not Resolved]
  - Vomiting [Not Recovered/Not Resolved]
